FAERS Safety Report 11939163 (Version 1)
Quarter: 2016Q1

REPORT INFORMATION
  Report Type: Spontaneous
  Country: DE (occurrence: DE)
  Receive Date: 20160122
  Receipt Date: 20160122
  Transmission Date: 20160526
  Serious: Yes (Other)
  Sender: FDA-Public Use
  Company Number: DE-PFIZER INC-2016026221

PATIENT
  Age: 30 Year
  Sex: Female

DRUGS (1)
  1. FARMORUBICIN [Suspect]
     Active Substance: EPIRUBICIN HYDROCHLORIDE
     Indication: BREAST CANCER
     Dosage: UNK

REACTIONS (3)
  - Skin reaction [Unknown]
  - Osteonecrosis [Unknown]
  - Extravasation [Unknown]

NARRATIVE: CASE EVENT DATE: 201512
